FAERS Safety Report 9877616 (Version 2)
Quarter: 2014Q1

REPORT INFORMATION
  Report Type: Other
  Country: US (occurrence: US)
  Receive Date: 20140206
  Receipt Date: 20140206
  Transmission Date: 20141002
  Serious: No
  Sender: FDA-Public Use
  Company Number: US-ACORDA-ACO_38839_2013

PATIENT
  Sex: Male
  Weight: 139.68 kg

DRUGS (6)
  1. AMPYRA [Suspect]
     Indication: GAIT DISTURBANCE
     Dosage: 10 UNK, BID
     Route: 048
     Dates: start: 20130821, end: 20130918
  2. BACLOFEN [Concomitant]
     Indication: MUSCLE SPASTICITY
     Dosage: 10 MG, BID
     Route: 048
     Dates: start: 20131009
  3. ASPIRIN [Concomitant]
     Indication: CORONARY ARTERY DISEASE
     Dosage: 81 UNK, QD
     Route: 048
     Dates: start: 2001
  4. METOPROLOL [Concomitant]
     Indication: HYPERTENSION
     Dosage: 100 MG, QD
     Route: 048
     Dates: start: 2001
  5. SPIRONOLACTONE [Concomitant]
     Indication: HYPERTENSION
     Dosage: 25 MG, Q HS
     Route: 048
     Dates: start: 2001
  6. LIPITOR [Concomitant]
     Indication: BLOOD CHOLESTEROL INCREASED
     Dosage: 10 MG, QD HS
     Route: 048
     Dates: start: 2001

REACTIONS (1)
  - Drug ineffective [Recovered/Resolved]
